FAERS Safety Report 22295429 (Version 3)
Quarter: 2023Q2

REPORT INFORMATION
  Report Type: Report from Study
  Country: CH (occurrence: CH)
  Receive Date: 20230508
  Receipt Date: 20230602
  Transmission Date: 20230721
  Serious: Yes (Hospitalization)
  Sender: FDA-Public Use
  Company Number: CH-TAKEDA-2023TUS045306

PATIENT
  Age: 52 Year
  Sex: Male
  Weight: 80 kg

DRUGS (19)
  1. LANADELUMAB [Suspect]
     Active Substance: LANADELUMAB
     Indication: Hereditary angioedema
     Dosage: 300 MILLIGRAM, Q2WEEKS
     Route: 058
     Dates: start: 20210413
  2. IBUPROFEN [Concomitant]
     Active Substance: IBUPROFEN
     Indication: Tendon rupture
     Dosage: 400 MILLIGRAM, BID
     Route: 048
     Dates: start: 20230315, end: 20230329
  3. IBUPROFEN [Concomitant]
     Active Substance: IBUPROFEN
     Indication: Hip arthroplasty
     Dosage: 800 MILLIGRAM, BID
     Route: 048
     Dates: start: 20230315, end: 20230325
  4. IBUPROFEN [Concomitant]
     Active Substance: IBUPROFEN
     Dosage: 1800 MILLIGRAM, BID
     Route: 048
     Dates: start: 20210716, end: 20210719
  5. DALTEPARIN [Concomitant]
     Active Substance: DALTEPARIN
     Indication: Tendon rupture
     Dosage: 2500 INTERNATIONAL UNIT
     Route: 058
     Dates: start: 20230315, end: 20230329
  6. DALTEPARIN [Concomitant]
     Active Substance: DALTEPARIN
     Dosage: 5000 INTERNATIONAL UNIT
     Route: 058
     Dates: start: 20230315, end: 20230329
  7. XARELTO [Concomitant]
     Active Substance: RIVAROXABAN
     Indication: Tendon rupture
     Dosage: 10 MILLIGRAM, QD
     Route: 048
     Dates: start: 20230315, end: 20230329
  8. BISOPROLOL [Concomitant]
     Active Substance: BISOPROLOL
     Indication: Hypertension
     Dosage: 5 MILLIGRAM
     Route: 048
     Dates: start: 201610
  9. CEFUROXIME [Concomitant]
     Active Substance: CEFUROXIME
     Indication: Hip arthroplasty
     Dosage: 1.5 GRAM
     Route: 042
     Dates: start: 20210716, end: 20210716
  10. SODIUM CHONDROITIN SULFATE [Concomitant]
     Active Substance: SODIUM CHONDROITIN SULFATE
     Indication: Osteoporosis prophylaxis
     Dosage: 800 MILLIGRAM
     Route: 048
     Dates: start: 20210201
  11. EPHEDRINE [Concomitant]
     Active Substance: EPHEDRINE
     Indication: Hip arthroplasty
     Dosage: 10 MILLIGRAM
     Route: 042
     Dates: start: 20210716, end: 20210716
  12. FENTANYL [Concomitant]
     Active Substance: FENTANYL
     Indication: Hip arthroplasty
     Dosage: 250 MICROGRAM
     Route: 042
     Dates: start: 20210716, end: 20210716
  13. PROPOFOL [Concomitant]
     Active Substance: PROPOFOL
     Indication: Femoral neck fracture
     Dosage: 1113 MILLIGRAM
     Route: 042
     Dates: start: 20210716, end: 20210716
  14. RIVAROXABAN [Concomitant]
     Active Substance: RIVAROXABAN
     Indication: Tenoplasty
     Dosage: 10 MILLIGRAM
     Route: 048
     Dates: start: 20230315, end: 20230329
  15. NALOXONE HYDROCHLORIDE\OXYCODONE HYDROCHLORIDE [Concomitant]
     Active Substance: NALOXONE HYDROCHLORIDE\OXYCODONE HYDROCHLORIDE
     Indication: Hip arthroplasty
     Dosage: 10 MILLIGRAM
     Route: 048
     Dates: start: 20210716, end: 20210717
  16. TORSEMIDE [Concomitant]
     Active Substance: TORSEMIDE
     Indication: Hypertension
     Dosage: 10 MILLIGRAM
     Route: 048
     Dates: start: 201610
  17. TRANEXAMIC ACID [Concomitant]
     Active Substance: TRANEXAMIC ACID
     Indication: Hip arthroplasty
     Dosage: 1000 MILLIGRAM
     Route: 042
     Dates: start: 20210716, end: 20210716
  18. LERCANIDIPINE HYDROCHLORIDE [Concomitant]
     Active Substance: LERCANIDIPINE HYDROCHLORIDE
     Indication: Hypertension
     Dosage: 10 MILLIGRAM
     Route: 048
     Dates: start: 201610
  19. METAMIZOLE [Concomitant]
     Active Substance: METAMIZOLE
     Indication: Femoral neck fracture
     Dosage: 20 MILLIGRAM
     Route: 048
     Dates: start: 20210716, end: 20210719

REACTIONS (1)
  - Tendon rupture [Recovered/Resolved]

NARRATIVE: CASE EVENT DATE: 20230303
